FAERS Safety Report 10043152 (Version 2)
Quarter: 2014Q1

REPORT INFORMATION
  Report Type: Spontaneous
  Country: JP (occurrence: JP)
  Receive Date: 20140328
  Receipt Date: 20140328
  Transmission Date: 20141002
  Serious: Yes (Hospitalization, Other)
  Sender: FDA-Public Use
  Company Number: JP-ROCHE-1353756

PATIENT
  Sex: Female
  Weight: 55 kg

DRUGS (8)
  1. ACTEMRA [Suspect]
     Indication: PRODUCT USED FOR UNKNOWN INDICATION
     Dosage: DOSAGE IS UNCERTAIN.
     Route: 058
  2. RHEUMATREX [Suspect]
     Indication: PRODUCT USED FOR UNKNOWN INDICATION
     Dosage: 2CAP AT THREE EVENINGS ON MORNING EVERY WEEK (THURSDAY)
     Route: 048
  3. FOLIAMIN [Concomitant]
     Route: 048
  4. LOXOPROFEN [Concomitant]
     Route: 048
  5. LAC-B [Concomitant]
     Route: 048
  6. ALDIOXA [Concomitant]
     Route: 048
  7. REBAMIPIDE [Concomitant]
     Route: 048
  8. BENET [Concomitant]
     Route: 048

REACTIONS (4)
  - Intraspinal abscess [Recovering/Resolving]
  - Abdominal abscess [Recovering/Resolving]
  - Peritonitis [Recovering/Resolving]
  - Spinal compression fracture [Unknown]
